FAERS Safety Report 5023609-3 (Version None)
Quarter: 2006Q2

REPORT INFORMATION
  Report Type: 
  Country: None (occurrence: None)
  Receive Date: 20060606
  Receipt Date: 20060524
  Transmission Date: 20061013
  Serious: Yes (Hospitalization)
  Sender: FDA-Public Use
  Company Number: 6022827

PATIENT
  Age: 94 Year
  Sex: Female

DRUGS (14)
  1. LEVOTHYROXINE SODIUM [Suspect]
     Dosage: 25 MCG (25 MCG,  D)
     Route: 048
     Dates: start: 20060313
  2. DIGOXIN [Suspect]
     Dosage: 0,5 DOSAGE FORMS (0,5 DOSAGE FORMS,1 D)
     Route: 048
     Dates: start: 20060320
  3. ISOPTIN [Suspect]
     Dosage: 240 MG (240 MG, 1 D)
     Route: 048
     Dates: start: 20060320
  4. ROCEPHIN [Suspect]
     Indication: BRONCHOPNEUMOPATHY
     Dosage: 1 GM (1 GM, 1 D)
     Route: 042
     Dates: start: 20060312, end: 20060320
  5. ZOLOFT [Suspect]
     Dosage: 50 MG (50 MG, 1 D)
     Route: 048
     Dates: start: 20060320
  6. MEDROL ACETATE [Concomitant]
  7. INIPOMP (PANTOPRAZOLE) [Concomitant]
  8. DIANTALVIC (PARACETAMOL, DEXTROPROPOXYPHENE) [Concomitant]
  9. XANAX [Concomitant]
  10. ZOLPIDEM TARTRATE [Concomitant]
  11. FOSAMAX [Concomitant]
  12. CACIT 3 (COLECALCIFEROL, CALCIUM CARBONATE) [Concomitant]
  13. TIAPRIDAL (TIAPRIDE) [Concomitant]
  14. NORMACOL (STERCULIA URENS, RHAMNUS FRANGULA EXTRACT) [Concomitant]

REACTIONS (10)
  - ANAEMIA [None]
  - BLOOD CREATININE INCREASED [None]
  - CAPILLARY FRAGILITY [None]
  - DIVERTICULITIS [None]
  - HAEMATOMA [None]
  - HAEMODYNAMIC INSTABILITY [None]
  - HAEMORRHOIDS [None]
  - RECTAL ULCER [None]
  - SCRATCH [None]
  - SKIN DISORDER [None]
